FAERS Safety Report 25792925 (Version 3)
Quarter: 2025Q4

REPORT INFORMATION
  Report Type: Report from Study
  Country: JP (occurrence: JP)
  Receive Date: 20250911
  Receipt Date: 20251210
  Transmission Date: 20260117
  Serious: Yes (Hospitalization)
  Sender: EISAI
  Company Number: JP-Eisai-EC-2025-194559

PATIENT
  Age: 81 Year
  Sex: Male
  Weight: 53 kg

DRUGS (3)
  1. LEQEMBI [Suspect]
     Active Substance: LECANEMAB-IRMB
     Indication: Cognitive disorder
     Route: 041
     Dates: start: 20250403, end: 2025
  2. LEQEMBI [Suspect]
     Active Substance: LECANEMAB-IRMB
     Route: 041
     Dates: start: 20250723, end: 20250723
  3. ASPIRIN [Concomitant]
     Active Substance: ASPIRIN

REACTIONS (3)
  - Cerebral haemorrhage [Recovered/Resolved]
  - Putamen haemorrhage [Recovered/Resolved]
  - Cerebral ventricular rupture [Recovered/Resolved]

NARRATIVE: CASE EVENT DATE: 20250724
